FAERS Safety Report 9315293 (Version 3)
Quarter: 2013Q3

REPORT INFORMATION
  Report Type: Report from Study
  Country: US (occurrence: US)
  Receive Date: 20130529
  Receipt Date: 20130726
  Transmission Date: 20140515
  Serious: Yes (Other)
  Sender: FDA-Public Use
  Company Number: US-ABBOTT-13P-163-1094392-00

PATIENT
  Sex: Female
  Weight: 72.64 kg

DRUGS (8)
  1. HUMIRA [Suspect]
     Indication: RHEUMATOID ARTHRITIS
     Dates: start: 201303, end: 20130403
  2. HUMIRA [Suspect]
     Dates: start: 20130501
  3. CALCIUM [Concomitant]
     Indication: MINERAL SUPPLEMENTATION
  4. CYMBALTA [Concomitant]
     Indication: DEPRESSION
  5. FISH OIL [Concomitant]
     Indication: SUPPLEMENTATION THERAPY
  6. TRAMADOL [Concomitant]
     Indication: PAIN
  7. VITAMIN D [Concomitant]
     Indication: VITAMIN SUPPLEMENTATION
  8. XANAX [Concomitant]
     Indication: ANXIETY

REACTIONS (6)
  - Joint injury [Unknown]
  - Injection site pain [Recovered/Resolved]
  - Injection site bruising [Recovered/Resolved]
  - Injection site erythema [Recovered/Resolved]
  - Injection site rash [Recovered/Resolved]
  - Pain [Unknown]
